FAERS Safety Report 8179348-3 (Version None)
Quarter: 2012Q1

REPORT INFORMATION
  Report Type: 
  Country: None (occurrence: None)
  Receive Date: 20120302
  Receipt Date: 20120221
  Transmission Date: 20120608
  Serious: Yes (Hospitalization)
  Sender: FDA-Public Use
  Company Number: NL-JNJFOC-20120207718

PATIENT
  Sex: Male
  Weight: 98 kg

DRUGS (1)
  1. STELARA [Suspect]
     Indication: PSORIASIS
     Route: 058
     Dates: start: 20120207

REACTIONS (3)
  - STAPHYLOCOCCAL BACTERAEMIA [None]
  - FEELING COLD [None]
  - ENDOCARDITIS [None]
